FAERS Safety Report 12680199 (Version 1)
Quarter: 2016Q3

REPORT INFORMATION
  Report Type: Report from Study
  Country: KR (occurrence: KR)
  Receive Date: 20160824
  Receipt Date: 20160824
  Transmission Date: 20161109
  Serious: No
  Sender: FDA-Public Use
  Company Number: PHHY2016KR115428

PATIENT
  Age: 52 Year
  Sex: Male

DRUGS (13)
  1. GASMOTIN [Concomitant]
     Active Substance: MOSAPRIDE CITRATE
     Indication: PROPHYLAXIS OF NAUSEA AND VOMITING
     Dosage: 15 MG, UNK
     Route: 048
     Dates: start: 20160425
  2. LECTACIN [Concomitant]
     Indication: UPPER RESPIRATORY TRACT INFECTION
     Dosage: 750 MG, UNK
     Route: 048
     Dates: start: 20160418, end: 20160424
  3. LECTACIN [Concomitant]
     Dosage: 750 MG, UNK
     Route: 048
     Dates: start: 20160516, end: 20160619
  4. NEXIUM [Concomitant]
     Active Substance: ESOMEPRAZOLE MAGNESIUM
     Indication: GASTRITIS PROPHYLAXIS
     Dosage: 20 NG, UNK
     Route: 048
     Dates: start: 20160516
  5. TASIGNA [Suspect]
     Active Substance: NILOTINIB
     Indication: CHRONIC MYELOID LEUKAEMIA
     Dosage: 600 MG, QD
     Route: 048
     Dates: start: 20160418
  6. MUCOPECT [Concomitant]
     Dosage: 90 MG, UNK
     Route: 048
     Dates: start: 20160516, end: 20160619
  7. TYLENOL [Concomitant]
     Active Substance: ACETAMINOPHEN
     Dosage: 3900 MG, UNK
     Route: 048
     Dates: start: 20160516, end: 20160619
  8. CODAEWON [Concomitant]
     Indication: UPPER RESPIRATORY TRACT INFECTION
     Dosage: 3 DF, UNK
     Route: 048
     Dates: start: 20160418, end: 20160424
  9. GODEX [Concomitant]
     Indication: ASPARTATE AMINOTRANSFERASE INCREASED
     Dosage: 4 DF, UNK
     Route: 048
     Dates: start: 20160502, end: 20160515
  10. CODAEWON [Concomitant]
     Dosage: 3 DF, UNK
     Route: 048
     Dates: start: 20160516, end: 20160619
  11. MUCOPECT [Concomitant]
     Indication: UPPER RESPIRATORY TRACT INFECTION
     Dosage: 90 MG, UNK
     Route: 048
     Dates: start: 20160418, end: 20160424
  12. TYLENOL [Concomitant]
     Active Substance: ACETAMINOPHEN
     Indication: UPPER RESPIRATORY TRACT INFECTION
     Dosage: 3900 MG, UNK
     Route: 048
     Dates: start: 20160418, end: 20160424
  13. GODEX [Concomitant]
     Indication: BLOOD ALKALINE PHOSPHATASE INCREASED

REACTIONS (1)
  - Rash [Not Recovered/Not Resolved]

NARRATIVE: CASE EVENT DATE: 20160420
